FAERS Safety Report 25109421 (Version 2)
Quarter: 2025Q1

REPORT INFORMATION
  Report Type: Spontaneous
  Country: JP (occurrence: JP)
  Receive Date: 20250323
  Receipt Date: 20250327
  Transmission Date: 20250409
  Serious: Yes (Death)
  Sender: TEVA
  Company Number: JP-TEVA-VS-3311078

PATIENT
  Sex: Male

DRUGS (6)
  1. FLUVOXAMINE [Suspect]
     Active Substance: FLUVOXAMINE
     Indication: Product used for unknown indication
     Route: 065
  2. FLUNITRAZEPAM [Suspect]
     Active Substance: FLUNITRAZEPAM
     Indication: Product used for unknown indication
     Route: 065
  3. DIAZEPAM [Concomitant]
     Active Substance: DIAZEPAM
     Indication: Product used for unknown indication
     Route: 065
  4. ETIZOLAM [Suspect]
     Active Substance: ETIZOLAM
     Indication: Product used for unknown indication
     Route: 065
  5. RISPERIDONE [Suspect]
     Active Substance: RISPERIDONE
     Indication: Product used for unknown indication
     Route: 048
  6. RISPERIDONE [Suspect]
     Active Substance: RISPERIDONE
     Indication: Product used for unknown indication
     Route: 048

REACTIONS (1)
  - Overdose [Fatal]
